FAERS Safety Report 12013291 (Version 2)
Quarter: 2018Q4

REPORT INFORMATION
  Report Type: Spontaneous
  Country: TR (occurrence: TR)
  Receive Date: 20160205
  Receipt Date: 20181106
  Transmission Date: 20190204
  Serious: Yes (Other)
  Sender: FDA-Public Use
  Company Number: TR-BAUSCH-BL-2016-001879

PATIENT
  Age: 9 Year
  Sex: Female
  Weight: 62.8 kg

DRUGS (3)
  1. MESALAZINE [Suspect]
     Active Substance: MESALAMINE
     Indication: PRODUCT USED FOR UNKNOWN INDICATION
     Route: 065
  2. PREDNISOLONE. [Concomitant]
     Active Substance: PREDNISOLONE
     Indication: PRODUCT USED FOR UNKNOWN INDICATION
  3. PREDNISOLONE. [Concomitant]
     Active Substance: PREDNISOLONE
     Dosage: 5MG/WEEK

REACTIONS (2)
  - Drug intolerance [Recovered/Resolved]
  - Condition aggravated [Recovered/Resolved]
